FAERS Safety Report 8542316-3 (Version None)
Quarter: 2012Q3

REPORT INFORMATION
  Report Type: 
  Country: None (occurrence: None)
  Receive Date: 20120726
  Receipt Date: 20111013
  Transmission Date: 20120928
  Serious: No
  Sender: FDA-Public Use
  Company Number: US-ASTRAZENECA-2011SE59890

PATIENT
  Age: 57 Year
  Sex: Female
  Weight: 72.6 kg

DRUGS (4)
  1. SEROQUEL XR [Suspect]
     Indication: DEPRESSION
     Route: 048
  2. SEROQUEL XR [Suspect]
     Dosage: 50 MG IN THE MORNING AND 2 150 MG AT BEDTIME
     Route: 048
     Dates: start: 20110901
  3. SEROQUEL XR [Suspect]
     Dosage: 50 MG IN THE MORNING AND 2 150 MG AT BEDTIME
     Route: 048
     Dates: start: 20110901
  4. SEROQUEL XR [Suspect]
     Indication: ANXIETY
     Route: 048

REACTIONS (6)
  - DRUG INEFFECTIVE [None]
  - SEDATION [None]
  - SOMNOLENCE [None]
  - EMOTIONAL POVERTY [None]
  - HANGOVER [None]
  - ANXIETY [None]
